FAERS Safety Report 25167596 (Version 1)
Quarter: 2025Q2

REPORT INFORMATION
  Report Type: Spontaneous
  Country: NL (occurrence: NL)
  Receive Date: 20250407
  Receipt Date: 20250407
  Transmission Date: 20250716
  Serious: Yes (Death, Hospitalization, Other)
  Sender: AMNEAL
  Company Number: NL-AMNEAL PHARMACEUTICALS-2025-AMRX-01192

PATIENT
  Age: 23 Year
  Sex: Male

DRUGS (4)
  1. QUETIAPINE FUMARATE [Suspect]
     Active Substance: QUETIAPINE FUMARATE
     Indication: Product used for unknown indication
     Route: 065
  2. OXYCODONE HYDROCHLORIDE [Suspect]
     Active Substance: OXYCODONE HYDROCHLORIDE
     Indication: Product used for unknown indication
     Route: 065
  3. COCAINE [Suspect]
     Active Substance: COCAINE
     Indication: Product used for unknown indication
     Route: 065
  4. GRAPEFRUIT [Suspect]
     Active Substance: GRAPEFRUIT
     Indication: Product used for unknown indication
     Route: 065

REACTIONS (10)
  - Toxic leukoencephalopathy [Fatal]
  - Shock [Unknown]
  - Multiple organ dysfunction syndrome [Fatal]
  - Cerebellar infarction [Unknown]
  - Hypotension [Unknown]
  - Rhabdomyolysis [Unknown]
  - Coma [Unknown]
  - Acute kidney injury [Unknown]
  - Overdose [Unknown]
  - Substance abuse [Unknown]
